FAERS Safety Report 6971085-3 (Version None)
Quarter: 2010Q3

REPORT INFORMATION
  Report Type: 
  Country: None (occurrence: None)
  Receive Date: 20100824
  Receipt Date: 20100311
  Transmission Date: 20110219
  Serious: Yes (Other)
  Sender: FDA-Public Use
  Company Number: 2010031786

PATIENT
  Age: 52 Year
  Sex: Male

DRUGS (2)
  1. AMLODIPINE BESYLATE [Suspect]
     Dosage: 5 MG
  2. BISOPROLOL FUMARATE/HYDROCHLOROTHIAZIDE [Suspect]
     Dosage: 5/5.25, 10/6.25

REACTIONS (1)
  - HYPERTENSION [None]
